FAERS Safety Report 9085262 (Version 1)
Quarter: 2013Q1

REPORT INFORMATION
  Report Type: Spontaneous
  Country: US (occurrence: US)
  Receive Date: 20130130
  Receipt Date: 20130130
  Transmission Date: 20140127
  Serious: No
  Sender: FDA-Public Use
  Company Number: US-009507513-1301USA012508

PATIENT
  Age: 21 Year
  Sex: Female

DRUGS (1)
  1. IMPLANON [Suspect]
     Indication: CONTRACEPTION
     Dosage: 1 ROD FOR 3 YEAR USE ON RIGHT ARM
     Route: 059
     Dates: start: 20121211

REACTIONS (4)
  - Urinary incontinence [Unknown]
  - Urine odour abnormal [Unknown]
  - Chromaturia [Unknown]
  - Implant site pruritus [Unknown]
